FAERS Safety Report 7552423-X (Version None)
Quarter: 2011Q2

REPORT INFORMATION
  Report Type: 
  Country: None (occurrence: None)
  Receive Date: 20110616
  Receipt Date: 20110610
  Transmission Date: 20111010
  Serious: Yes (Hospitalization)
  Sender: FDA-Public Use
  Company Number: FR-PFIZER INC-2011096538

PATIENT
  Age: 44 Year
  Sex: Female

DRUGS (4)
  1. SIROLIMUS [Suspect]
     Indication: IMMUNOSUPPRESSANT DRUG THERAPY
     Dosage: UNK
     Route: 048
     Dates: start: 20061212
  2. SIROLIMUS [Suspect]
     Dosage: 6 MG, 1X/DAY
     Route: 048
     Dates: start: 20070625
  3. CELLCEPT [Suspect]
     Indication: IMMUNOSUPPRESSANT DRUG THERAPY
     Dosage: UNKNOWN
     Dates: start: 20060926
  4. CELLCEPT [Suspect]
     Dosage: 50 MG, 2X/DAY
     Route: 048
     Dates: start: 20070625

REACTIONS (2)
  - SEPTIC SHOCK [None]
  - LYMPHOPENIA [None]
